FAERS Safety Report 21314031 (Version 1)
Quarter: 2022Q3

REPORT INFORMATION
  Report Type: Spontaneous
  Country: JP (occurrence: JP)
  Receive Date: 20220909
  Receipt Date: 20220909
  Transmission Date: 20221027
  Serious: Yes (Other)
  Sender: FDA-Public Use
  Company Number: JP-ABBVIE-22K-087-4532275-00

PATIENT

DRUGS (1)
  1. GLECAPREVIR\PIBRENTASVIR [Suspect]
     Active Substance: GLECAPREVIR\PIBRENTASVIR
     Indication: Hepatitis C
     Route: 048

REACTIONS (19)
  - Hepatic cancer [Unknown]
  - Pruritus [Unknown]
  - Palpitations [Unknown]
  - Dizziness [Unknown]
  - Rhinorrhoea [Unknown]
  - Faeces soft [Unknown]
  - Dry mouth [Unknown]
  - Muscle spasms [Unknown]
  - Oedema [Unknown]
  - Hypertension [Unknown]
  - Hypotension [Unknown]
  - Headache [Unknown]
  - Nausea [Unknown]
  - Dyspepsia [Unknown]
  - Malaise [Unknown]
  - Somnolence [Unknown]
  - Constipation [Unknown]
  - Abdominal pain [Unknown]
  - Rash [Unknown]
